FAERS Safety Report 23509159 (Version 7)
Quarter: 2024Q1

REPORT INFORMATION
  Report Type: Other
  Country: CN (occurrence: None)
  Receive Date: 20240210
  Receipt Date: 20240212
  Transmission Date: 20240410
  Serious: Yes (Other)
  Sender: FDA-Public Use
  Company Number: CN-ROCHE-3506104

PATIENT

DRUGS (7)
  1. BEVACIZUMAB [Suspect]
     Active Substance: BEVACIZUMAB
     Indication: Ovarian cancer
     Dosage: FIVE CYCLES OF CHEMOTHERAPY TC REGIMEN (PACLITAXEL + CARBOPLATIN) AND BEVACIZUMAB WERE STARTED ON TH
     Route: 041
  2. CISPLATIN [Suspect]
     Active Substance: CISPLATIN
     Indication: Ovarian cancer
     Dosage: INTRAPERITONEAL HYPERTHERMIC PERFUSION OF CISPLATIN 80 MG/M2 WAS PERFORMED ON THE SECOND DAY AFTER S
     Route: 033
  3. PACLITAXEL [Suspect]
     Active Substance: PACLITAXEL
     Indication: Ovarian cancer
     Dosage: PACLITAXEL 135-175 MG/M2 ON POSTOPERATIVE DAY 7.
     Route: 041
  4. PACLITAXEL [Suspect]
     Active Substance: PACLITAXEL
     Dosage: FIVE CYCLES OF CHEMOTHERAPY TC REGIMEN (PACLITAXEL + CARBOPLATIN) AND BEVACIZUMAB WERE STARTED ON TH
     Route: 041
  5. CARBOPLATIN [Suspect]
     Active Substance: CARBOPLATIN
     Indication: Ovarian cancer
     Dosage: FIVE CYCLES OF CHEMOTHERAPY TC REGIMEN (PACLITAXEL + CARBOPLATIN) AND BEVACIZUMAB WERE STARTED ON TH
     Route: 065
  6. DEXAMETHASONE [Concomitant]
     Active Substance: DEXAMETHASONE
  7. DIPHENHYDRAMINE [Concomitant]
     Active Substance: DIPHENHYDRAMINE

REACTIONS (8)
  - Myelosuppression [Unknown]
  - Gastrointestinal disorder [Unknown]
  - Neurotoxicity [Unknown]
  - Hypertension [Unknown]
  - Proteinuria [Unknown]
  - Haemorrhage [Unknown]
  - Thrombosis [Unknown]
  - Arthralgia [Unknown]
